FAERS Safety Report 13805506 (Version 1)
Quarter: 2017Q3

REPORT INFORMATION
  Report Type: Report from Study
  Country: None (occurrence: MX)
  Receive Date: 20170728
  Receipt Date: 20170728
  Transmission Date: 20171127
  Serious: Yes (Other)
  Sender: FDA-Public Use
  Company Number: MX-ABBVIE-17K-107-2050775-00

PATIENT
  Age: 43 Year
  Sex: Female

DRUGS (1)
  1. HUMIRA [Suspect]
     Active Substance: ADALIMUMAB
     Indication: ANKYLOSING SPONDYLITIS
     Route: 058

REACTIONS (4)
  - Acne [Not Recovered/Not Resolved]
  - Injection site erythema [Recovering/Resolving]
  - Blood pressure decreased [Not Recovered/Not Resolved]
  - Poisoning [Recovering/Resolving]

NARRATIVE: CASE EVENT DATE: 201707
